FAERS Safety Report 10583199 (Version 1)
Quarter: 2014Q4

REPORT INFORMATION
  Report Type: Report from Study
  Country: GB (occurrence: GB)
  Receive Date: 20141114
  Receipt Date: 20141114
  Transmission Date: 20150529
  Serious: Yes (Death)
  Sender: FDA-Public Use
  Company Number: GB-ROCHE-1490813

PATIENT
  Age: 59 Year
  Sex: Female

DRUGS (2)
  1. DISODIUM PAMIDRONATE [Concomitant]
     Route: 042
     Dates: end: 20140110
  2. TRASTUZUMAB [Suspect]
     Active Substance: TRASTUZUMAB
     Indication: BREAST CANCER
     Route: 042
     Dates: end: 20140207

REACTIONS (1)
  - Death [Fatal]
